FAERS Safety Report 5293803-5 (Version None)
Quarter: 2007Q2

REPORT INFORMATION
  Report Type: 
  Country: None (occurrence: None)
  Receive Date: 20070411
  Receipt Date: 20070330
  Transmission Date: 20071010
  Serious: Yes (Other)
  Sender: FDA-Public Use
  Company Number: FR-PFIZER INC-2007027382

PATIENT
  Age: 63 Year
  Sex: Male

DRUGS (1)
  1. METHYLPREDNISOLONE SODIUM SUCCINATE [Suspect]
     Indication: MYELOPATHY
     Route: 042

REACTIONS (3)
  - ARTERIOVENOUS FISTULA [None]
  - INFLAMMATION [None]
  - MYELOPATHY [None]
